FAERS Safety Report 26119560 (Version 1)
Quarter: 2025Q4

REPORT INFORMATION
  Report Type: Spontaneous
  Country: EU (occurrence: EU)
  Receive Date: 20251204
  Receipt Date: 20251204
  Transmission Date: 20260118
  Serious: Yes (Hospitalization)
  Sender: ROCHE
  Company Number: None

PATIENT
  Age: 65 Year
  Sex: Male

DRUGS (2)
  1. TECENTRIQ [Suspect]
     Active Substance: ATEZOLIZUMAB
     Indication: Small cell lung cancer
     Dosage: 1875 MG
     Route: 058
     Dates: start: 20250702, end: 20251006
  2. CEMIDON B6 300 MG/50 MG COMPRIMIDOS, 30 comprimidos [Concomitant]
     Indication: Latent tuberculosis
     Dosage: 300MG / 50MG
     Route: 048
     Dates: start: 20250811, end: 20250908

REACTIONS (3)
  - Immune-mediated hepatitis [Recovering/Resolving]
  - Hepatic cytolysis [Recovering/Resolving]
  - Hyperbilirubinaemia [Recovering/Resolving]

NARRATIVE: CASE EVENT DATE: 20251013
